FAERS Safety Report 8026795-6 (Version None)
Quarter: 2011Q4

REPORT INFORMATION
  Report Type: 
  Country: None (occurrence: None)
  Receive Date: 20111130
  Receipt Date: 20110808
  Transmission Date: 20120403
  Serious: Yes (Other)
  Sender: FDA-Public Use
  Company Number: US200911004041

PATIENT
  Sex: Male

DRUGS (7)
  1. BYETTA [Suspect]
     Dosage: 10 UG, BID
     Dates: start: 20070901, end: 20091101
  2. GLYBURIDE [Concomitant]
  3. LISINOPRIL [Concomitant]
  4. TYLENOL PM (DIPHENHYDRAMINE HYDROCHLORIDE, PARACETAMOL) [Concomitant]
  5. CIALIS [Concomitant]
  6. EXENATIDE (EXENATIDE PEN) [Suspect]
  7. SIMVASTATIN [Concomitant]

REACTIONS (5)
  - PANCREATITIS [None]
  - BLOOD PRESSURE ABNORMAL [None]
  - BACK PAIN [None]
  - RENAL FAILURE [None]
  - BLOOD CHOLESTEROL ABNORMAL [None]
